FAERS Safety Report 5851166-8 (Version None)
Quarter: 2008Q3

REPORT INFORMATION
  Report Type: 
  Country: None (occurrence: None)
  Receive Date: 20080731
  Receipt Date: 20080415
  Transmission Date: 20090109
  Serious: No
  Sender: FDA-Public Use
  Company Number: US200804004197

PATIENT
  Age: 53 Year
  Sex: Male

DRUGS (7)
  1. BYETTA [Suspect]
     Indication: TYPE 2 DIABETES MELLITUS
     Dosage: SEE IMAGE
     Route: 058
     Dates: start: 20080301, end: 20080101
  2. BYETTA [Suspect]
     Indication: TYPE 2 DIABETES MELLITUS
     Dosage: SEE IMAGE
     Route: 058
     Dates: start: 20070101, end: 20080301
  3. BYETTA [Suspect]
     Indication: TYPE 2 DIABETES MELLITUS
     Dosage: SEE IMAGE
     Route: 058
     Dates: start: 20080301, end: 20080301
  4. BYETTA [Suspect]
     Indication: TYPE 2 DIABETES MELLITUS
     Dosage: SEE IMAGE
     Route: 058
     Dates: start: 20080101
  5. GLUCOPHAGE /USA/ (METFORMIN HYDROCHLORIDE) [Concomitant]
  6. ACTOS /USA/ (PIOGLITAZONE HYDROCHLORIDE) [Concomitant]
  7. COUMADIN [Concomitant]

REACTIONS (4)
  - ABDOMINAL DISTENSION [None]
  - BLOOD GLUCOSE INCREASED [None]
  - GLYCOSYLATED HAEMOGLOBIN INCREASED [None]
  - INJECTION SITE HAEMATOMA [None]
